FAERS Safety Report 12667827 (Version 2)
Quarter: 2016Q3

REPORT INFORMATION
  Report Type: Report from Study
  Country: CA (occurrence: IN)
  Receive Date: 20160819
  Receipt Date: 20160829
  Transmission Date: 20161109
  Serious: Yes (Other)
  Sender: FDA-Public Use
  Company Number: CA-JNJFOC-20160811466

PATIENT
  Age: 30 Year
  Sex: Male
  Weight: 52 kg

DRUGS (2)
  1. REMICADE [Suspect]
     Active Substance: INFLIXIMAB
     Indication: COLITIS ULCERATIVE
     Route: 042
     Dates: start: 20160413
  2. REMICADE [Suspect]
     Active Substance: INFLIXIMAB
     Indication: COLITIS ULCERATIVE
     Route: 042
     Dates: end: 20160721

REACTIONS (4)
  - Drug specific antibody present [Unknown]
  - Drug dose omission [Unknown]
  - Drug level decreased [Unknown]
  - Depression [Unknown]

NARRATIVE: CASE EVENT DATE: 20160812
